FAERS Safety Report 12632614 (Version 2)
Quarter: 2016Q3

REPORT INFORMATION
  Report Type: Spontaneous
  Country: US (occurrence: US)
  Receive Date: 20160808
  Receipt Date: 20160808
  Transmission Date: 20161109
  Serious: Yes (Other)
  Sender: FDA-Public Use
  Company Number: US-BEH-2015056227

PATIENT
  Sex: Female
  Weight: 100 kg

DRUGS (35)
  1. ACETAMINOPHEN. [Concomitant]
     Active Substance: ACETAMINOPHEN
  2. ISOSORBIDE MONONITRATE EXTENDED RELEASE [Concomitant]
     Active Substance: ISOSORBIDE MONONITRATE
  3. CRESTOR [Concomitant]
     Active Substance: ROSUVASTATIN CALCIUM
  4. LEXAPRO [Concomitant]
     Active Substance: ESCITALOPRAM OXALATE
  5. HIZENTRA [Suspect]
     Active Substance: HUMAN IMMUNOGLOBULIN G
     Indication: IDIOPATHIC URTICARIA
     Route: 058
  6. PREDNISONE. [Concomitant]
     Active Substance: PREDNISONE
  7. STERILE WATER [Concomitant]
     Active Substance: WATER
  8. XOLAIR [Concomitant]
     Active Substance: OMALIZUMAB
  9. PROVENTIL HFA [Concomitant]
     Active Substance: ALBUTEROL SULFATE
  10. CROMOLYN SODIUM. [Concomitant]
     Active Substance: CROMOLYN SODIUM
  11. GASTROCROM [Concomitant]
     Active Substance: CROMOLYN SODIUM
  12. MACRODANTIN [Concomitant]
     Active Substance: NITROFURANTOIN
  13. SYNTHROID [Concomitant]
     Active Substance: LEVOTHYROXINE SODIUM
  14. MESTINON [Concomitant]
     Active Substance: PYRIDOSTIGMINE BROMIDE
  15. XANAX [Concomitant]
     Active Substance: ALPRAZOLAM
  16. HYDROXYZINE [Concomitant]
     Active Substance: HYDROXYZINE\HYDROXYZINE HYDROCHLORIDE
  17. MORPHINE SULFATE. [Concomitant]
     Active Substance: MORPHINE SULFATE
  18. PROBIOTIC DIGESTIVE CARE [Concomitant]
  19. CIPRO [Concomitant]
     Active Substance: CIPROFLOXACIN HYDROCHLORIDE
  20. DIPHENHYDRAMINE. [Concomitant]
     Active Substance: DIPHENHYDRAMINE
  21. CATAPRESS-TTS 2 [Concomitant]
  22. HIZENTRA [Suspect]
     Active Substance: HUMAN IMMUNOGLOBULIN G
     Indication: AUTOIMMUNE DISORDER
     Route: 058
  23. HIZENTRA [Suspect]
     Active Substance: HUMAN IMMUNOGLOBULIN G
     Indication: AUTOIMMUNE DISORDER
     Route: 058
  24. SINGULAIR [Concomitant]
     Active Substance: MONTELUKAST SODIUM
  25. ZOFRAN [Concomitant]
     Active Substance: ONDANSETRON HYDROCHLORIDE
  26. ADVAIR HFA [Concomitant]
     Active Substance: FLUTICASONE PROPIONATE\SALMETEROL XINAFOATE
  27. NEXIUM [Concomitant]
     Active Substance: ESOMEPRAZOLE MAGNESIUM
  28. ZANTAC [Concomitant]
     Active Substance: RANITIDINE HYDROCHLORIDE
  29. BENTYL [Concomitant]
     Active Substance: DICYCLOMINE HYDROCHLORIDE
  30. GLEEVEC [Suspect]
     Active Substance: IMATINIB MESYLATE
     Indication: PRODUCT USED FOR UNKNOWN INDICATION
  31. LMX [Concomitant]
     Active Substance: LIDOCAINE
  32. WELLBUTRIN XL [Concomitant]
     Active Substance: BUPROPION HYDROCHLORIDE
  33. MACROBID [Concomitant]
     Active Substance: NITROFURANTOIN\NITROFURANTOIN MONOHYDRATE
  34. NORVASC [Concomitant]
     Active Substance: AMLODIPINE BESYLATE
  35. BELLADONNA [Concomitant]
     Active Substance: ATROPA BELLADONNA

REACTIONS (1)
  - Anaphylactic reaction [Unknown]
